FAERS Safety Report 5292450-9 (Version None)
Quarter: 2007Q2

REPORT INFORMATION
  Report Type: 
  Country: None (occurrence: None)
  Receive Date: 20070403
  Receipt Date: 20070323
  Transmission Date: 20071010
  Serious: Yes (Hospitalization)
  Sender: FDA-Public Use
  Company Number: S07-CAN-01255-01

PATIENT
  Age: 85 Year
  Sex: Female

DRUGS (1)
  1. ESCITALOPRAM [Suspect]
     Dosage: 10 MG QD PO
     Route: 048
     Dates: start: 20070102, end: 20070204

REACTIONS (4)
  - CYANOSIS [None]
  - DYSPHONIA [None]
  - LARYNGOSPASM [None]
  - VOCAL CORD DISORDER [None]
